FAERS Safety Report 17067176 (Version 1)
Quarter: 2019Q4

REPORT INFORMATION
  Report Type: Spontaneous
  Country: FR (occurrence: FR)
  Receive Date: 20191122
  Receipt Date: 20191122
  Transmission Date: 20200122
  Serious: Yes (Hospitalization, Other)
  Sender: FDA-Public Use
  Company Number: FR-MYLANLABS-2019M1112724

PATIENT

DRUGS (2)
  1. TRAMADOL. [Suspect]
     Active Substance: TRAMADOL
     Indication: HEADACHE
     Dosage: UNK
  2. BIPROFENID [Concomitant]
     Active Substance: KETOPROFEN
     Indication: HEADACHE
     Dosage: UNK

REACTIONS (7)
  - Hypokalaemia [Recovered/Resolved]
  - Vomiting [Not Recovered/Not Resolved]
  - Loss of consciousness [Unknown]
  - Malaise [Unknown]
  - Presyncope [Not Recovered/Not Resolved]
  - Drug ineffective [Unknown]
  - Hyponatraemia [Recovered/Resolved]
